FAERS Safety Report 10509089 (Version 1)
Quarter: 2014Q4

REPORT INFORMATION
  Report Type: Spontaneous
  Country: BR (occurrence: BR)
  Receive Date: 20141009
  Receipt Date: 20141009
  Transmission Date: 20150528
  Serious: Yes (Other)
  Sender: FDA-Public Use
  Company Number: BR-ALLERGAN-1421392US

PATIENT
  Age: 15 Year
  Sex: Female

DRUGS (1)
  1. ZYPRED [Suspect]
     Active Substance: GATIFLOXACIN\PREDNISOLONE ACETATE
     Indication: EYELID IRRITATION
     Dosage: 1 GTT, Q4HR
     Route: 047
     Dates: start: 20141001

REACTIONS (4)
  - Gait disturbance [Recovering/Resolving]
  - Nausea [Recovering/Resolving]
  - Dysarthria [Recovering/Resolving]
  - Language disorder [Recovering/Resolving]

NARRATIVE: CASE EVENT DATE: 20141001
